APPROVED DRUG PRODUCT: MORPHINE SULFATE
Active Ingredient: MORPHINE SULFATE
Strength: 100MG/5ML
Dosage Form/Route: SOLUTION;ORAL
Application: A202348 | Product #001 | TE Code: AA
Applicant: SPECGX LLC
Approved: Jul 15, 2011 | RLD: No | RS: No | Type: RX